FAERS Safety Report 24116294 (Version 1)
Quarter: 2024Q3

REPORT INFORMATION
  Report Type: Spontaneous
  Country: US (occurrence: US)
  Receive Date: 20240722
  Receipt Date: 20240722
  Transmission Date: 20241017
  Serious: No
  Sender: AMGEN
  Company Number: US-AMGEN-USASP2024141559

PATIENT
  Age: 36 Year
  Sex: Male

DRUGS (4)
  1. BEVACIZUMAB [Suspect]
     Active Substance: BEVACIZUMAB
     Indication: Central serous chorioretinopathy
     Dosage: UNK
  2. EPLERENONE [Concomitant]
     Active Substance: EPLERENONE
     Indication: Central serous chorioretinopathy
     Dosage: 50 MILLIGRAM, QD (FOR 1 MONTH)
     Route: 065
  3. VYVANSE [Concomitant]
     Active Substance: LISDEXAMFETAMINE DIMESYLATE
     Indication: Attention deficit hyperactivity disorder
  4. CAFFEINE [Concomitant]
     Active Substance: CAFFEINE

REACTIONS (1)
  - Off label use [Unknown]
